FAERS Safety Report 7942211-4 (Version None)
Quarter: 2011Q4

REPORT INFORMATION
  Report Type: 
  Country: None (occurrence: None)
  Receive Date: 20111128
  Receipt Date: 20111123
  Transmission Date: 20120403
  Serious: Yes (Death, Other)
  Sender: FDA-Public Use
  Company Number: IT-ELI_LILLY_AND_COMPANY-IT201111007411

PATIENT
  Sex: Male

DRUGS (2)
  1. EFFIENT [Suspect]
  2. REOPRO [Concomitant]

REACTIONS (1)
  - MYOCARDIAL RUPTURE [None]
